FAERS Safety Report 21303719 (Version 3)
Quarter: 2022Q4

REPORT INFORMATION
  Report Type: Spontaneous
  Country: US (occurrence: US)
  Receive Date: 20220907
  Receipt Date: 20221011
  Transmission Date: 20230113
  Serious: Yes (Other)
  Sender: FDA-Public Use
  Company Number: US-SAMSUNG BIOEPIS-SB-2022-22048

PATIENT
  Age: 52 Year
  Sex: Male

DRUGS (3)
  1. INFLIXIMAB [Suspect]
     Active Substance: INFLIXIMAB
     Indication: Behcet^s syndrome
     Dosage: UNKNOWN. MAINTENANCE
     Route: 065
  2. METHOTREXATE [Concomitant]
     Active Substance: METHOTREXATE
     Indication: Drug specific antibody
     Dosage: UNKNOWN
     Route: 065
  3. PREDNISONE [Concomitant]
     Active Substance: PREDNISONE
     Indication: Behcet^s syndrome
     Dosage: UNKNOWN, TAPER
     Route: 048

REACTIONS (5)
  - Myoclonus [Recovering/Resolving]
  - Pneumonia aspiration [Unknown]
  - Vocal cord dysfunction [Unknown]
  - Obstructive sleep apnoea syndrome [Unknown]
  - Off label use [Unknown]
